FAERS Safety Report 9894353 (Version 2)
Quarter: 2014Q1

REPORT INFORMATION
  Report Type: Report from Study
  Country: US (occurrence: US)
  Receive Date: 20140213
  Receipt Date: 20140313
  Transmission Date: 20141002
  Serious: Yes (Hospitalization)
  Sender: FDA-Public Use
  Company Number: US-JNJFOC-20140205018

PATIENT
  Age: 65 Year
  Sex: Male
  Weight: 92.53 kg

DRUGS (2)
  1. REMICADE [Suspect]
     Indication: RHEUMATOID ARTHRITIS
     Route: 042
     Dates: start: 201212
  2. REMICADE [Suspect]
     Indication: RHEUMATOID ARTHRITIS
     Dosage: INITIATED ON AN UNSPECIFIED DATE ABOUT 02 YEARS PRIOR TO THE DATE OF THIS REPORT
     Route: 042

REACTIONS (3)
  - Myocardial infarction [Recovered/Resolved]
  - Drug ineffective [Not Recovered/Not Resolved]
  - Back disorder [Not Recovered/Not Resolved]
